FAERS Safety Report 9332922 (Version 1)
Quarter: 2013Q2

REPORT INFORMATION
  Report Type: Spontaneous
  Country: FR (occurrence: FR)
  Receive Date: 20130606
  Receipt Date: 20130606
  Transmission Date: 20140414
  Serious: Yes (Hospitalization)
  Sender: FDA-Public Use
  Company Number: FR-PFIZER INC-2013166551

PATIENT
  Age: 30 Year
  Sex: Female

DRUGS (3)
  1. TRINORDIOL [Suspect]
     Indication: CONTRACEPTION
     Dosage: UNK
     Route: 048
  2. IBUPROFEN [Suspect]
     Dosage: UNK
     Route: 048
  3. DOLIPRANE [Suspect]
     Dosage: UNK
     Route: 048

REACTIONS (1)
  - Cerebral venous thrombosis [Recovered/Resolved with Sequelae]
